FAERS Safety Report 4657933-0 (Version None)
Quarter: 2005Q2

REPORT INFORMATION
  Report Type: 
  Country: None (occurrence: None)
  Receive Date: 20050504
  Receipt Date: 20040826
  Transmission Date: 20051028
  Serious: Yes (Hospitalization)
  Sender: FDA-Public Use
  Company Number: 002511

PATIENT
  Age: 45 Year
  Sex: Female
  Weight: 61.2 kg

DRUGS (8)
  1. CENESTIN (SYNTHETIC CONJUGATED ESTROGENS, A) TABLET, 0.9 MG [Suspect]
     Indication: HORMONE REPLACEMENT THERAPY
     Dosage: 1.00 TABLET, QD, ORAL
     Route: 048
     Dates: start: 20030801, end: 20040601
  2. CENESTIN (SYNTHETIC CONJUGATED ESTROGENS, A) TABLET, 0.9 MG [Suspect]
     Indication: HORMONE REPLACEMENT THERAPY
     Dosage: 1.00 TABLET, QD, ORAL
     Route: 048
     Dates: start: 20040601
  3. COUMADIN [Concomitant]
  4. LANOXIN [Concomitant]
  5. PATANOL [Concomitant]
  6. ULTRAM [Concomitant]
  7. POTASSIUM CHLORIDE [Concomitant]
  8. NEXIUM USA (ESOMEPRAZOLE MAGNESIUM) [Concomitant]

REACTIONS (3)
  - ABDOMINAL PAIN [None]
  - BLOOD TRIGLYCERIDES INCREASED [None]
  - PANCREATITIS [None]
